FAERS Safety Report 4740518-5 (Version None)
Quarter: 2005Q3

REPORT INFORMATION
  Report Type: 
  Country: None (occurrence: None)
  Receive Date: 20050809
  Receipt Date: 20050725
  Transmission Date: 20060218
  Serious: Yes (Death)
  Sender: FDA-Public Use
  Company Number: 2005S1006866

PATIENT
  Age: 86 Year
  Sex: Female

DRUGS (1)
  1. FENTANYL [Suspect]
     Indication: PAIN
     Dosage: 25 MCG/HR; Q3D;TDER
     Route: 062
     Dates: start: 20050613, end: 20050617

REACTIONS (7)
  - ANXIETY [None]
  - CEREBROVASCULAR ACCIDENT [None]
  - DRUG WITHDRAWAL SYNDROME [None]
  - HYPERKALAEMIA [None]
  - HYPERTENSION [None]
  - RESTLESSNESS [None]
  - TREMOR [None]
